FAERS Safety Report 14429164 (Version 1)
Quarter: 2018Q1

REPORT INFORMATION
  Report Type: Report from Study
  Country: US (occurrence: US)
  Receive Date: 20180123
  Receipt Date: 20180123
  Transmission Date: 20180509
  Serious: No
  Sender: FDA-Public Use
  Company Number: US-AMGEN-USASP2016080492

PATIENT
  Age: 74 Year
  Sex: Female

DRUGS (3)
  1. REPATHA [Suspect]
     Active Substance: EVOLOCUMAB
     Dosage: 140 MG, Q3WK
     Route: 058
  2. REPATHA [Suspect]
     Active Substance: EVOLOCUMAB
     Indication: HYPERCHOLESTEROLAEMIA
     Dosage: 140 MG, Q2WK
     Route: 058
     Dates: start: 201603
  3. LEVOTHYROXIN [Concomitant]
     Active Substance: LEVOTHYROXINE
     Dosage: 75 MUG, UNK

REACTIONS (3)
  - Off label use [Unknown]
  - Rhinorrhoea [Unknown]
  - Blood pressure increased [Unknown]

NARRATIVE: CASE EVENT DATE: 201603
